FAERS Safety Report 16090112 (Version 2)
Quarter: 2019Q1

REPORT INFORMATION
  Report Type: Report from Study
  Country: US (occurrence: US)
  Receive Date: 20190319
  Receipt Date: 20190320
  Transmission Date: 20190418
  Serious: No
  Sender: FDA-Public Use
  Company Number: US-SA-2019SA071879

PATIENT
  Age: 74 Year
  Sex: Female

DRUGS (1)
  1. ALIROCUMAB [Suspect]
     Active Substance: ALIROCUMAB
     Indication: BLOOD CHOLESTEROL INCREASED
     Dosage: 75 MG, QOW
     Route: 058
     Dates: start: 201810

REACTIONS (8)
  - Skin lesion [Unknown]
  - Headache [Not Recovered/Not Resolved]
  - Rash generalised [Unknown]
  - Joint swelling [Unknown]
  - Viral infection [Unknown]
  - Mass [Unknown]
  - Pyrexia [Recovered/Resolved]
  - Arthritis [Not Recovered/Not Resolved]

NARRATIVE: CASE EVENT DATE: 20190228
